FAERS Safety Report 5427824-6 (Version None)
Quarter: 2007Q3

REPORT INFORMATION
  Report Type: 
  Country: None (occurrence: None)
  Receive Date: 20070828
  Receipt Date: 20070815
  Transmission Date: 20080115
  Serious: Yes (Death, Hospitalization, Other)
  Sender: FDA-Public Use
  Company Number: US-ELI_LILLY_AND_COMPANY-US200704000174

PATIENT
  Sex: Female

DRUGS (2)
  1. FORTEO [Suspect]
     Indication: BONE DENSITY INCREASED
     Dosage: 20 UG, DAILY (1/D)
     Dates: start: 20051001, end: 20060701
  2. FOSAMAX [Concomitant]
     Dosage: 70 MG, WEEKLY (1/W)

REACTIONS (2)
  - BREAST CANCER [None]
  - TRANSITIONAL CELL CANCER OF RENAL PELVIS AND URETER METASTATIC [None]
